FAERS Safety Report 9719667 (Version 2)
Quarter: 2013Q4

REPORT INFORMATION
  Report Type: Spontaneous
  Country: AU (occurrence: AU)
  Receive Date: 20131128
  Receipt Date: 20131220
  Transmission Date: 20140711
  Serious: Yes (Hospitalization)
  Sender: FDA-Public Use
  Company Number: AU-009507513-1311AUS009941

PATIENT
  Age: 49 Year
  Sex: Female
  Weight: 70 kg

DRUGS (5)
  1. VICTRELIS 200 MG [Suspect]
     Indication: ANTIVIRAL TREATMENT
     Dosage: TOTAL DAILY DOSE 2400 MG WEEK 18 OF BOCEPREVIR
     Route: 048
     Dates: start: 20130719
  2. OLANZAPINE [Concomitant]
     Dosage: UNK
  3. SERETIDE [Concomitant]
     Dosage: UNK
  4. VENTOLIN (ALBUTEROL) [Concomitant]
     Dosage: UNK
  5. KETOTIFEN FUMARATE [Concomitant]
     Dosage: UNK

REACTIONS (1)
  - Transient ischaemic attack [Recovered/Resolved]
